FAERS Safety Report 7652532-0 (Version None)
Quarter: 2011Q3

REPORT INFORMATION
  Report Type: 
  Country: None (occurrence: None)
  Receive Date: 20110728
  Receipt Date: 20110718
  Transmission Date: 20111222
  Serious: Yes (Hospitalization, Other)
  Sender: FDA-Public Use
  Company Number: 119940

PATIENT
  Age: 48 Year
  Sex: Female

DRUGS (1)
  1. DIHYDROERGOTAMINE MESYLATE [Suspect]
     Indication: MIGRAINE
     Dosage: 0.5MG FOR 1 DOSE AND 1MG EVERY 8 HOURS DAY

REACTIONS (8)
  - MEDICATION ERROR [None]
  - COLITIS ISCHAEMIC [None]
  - DEPRESSED LEVEL OF CONSCIOUSNESS [None]
  - HYPOTENSION [None]
  - ACIDOSIS [None]
  - COLON GANGRENE [None]
  - THROMBOSIS [None]
  - EMBOLISM [None]
